FAERS Safety Report 7876897-X (Version None)
Quarter: 2011Q4

REPORT INFORMATION
  Report Type: 
  Country: None (occurrence: None)
  Receive Date: 20111031
  Receipt Date: 20111024
  Transmission Date: 20120403
  Serious: Yes (Life-Threatening, Other)
  Sender: FDA-Public Use
  Company Number: FR-CEPHALON-2011005351

PATIENT
  Sex: Female
  Weight: 61 kg

DRUGS (12)
  1. HYDROMORPHONE HCL [Suspect]
     Route: 048
  2. NEXIUM [Concomitant]
     Indication: MUSCULOSKELETAL PAIN
     Dates: start: 20090101
  3. FENTANYL-100 [Suspect]
     Route: 062
  4. ACETAMINOPHEN AND TRAMADOL HCL [Suspect]
  5. MORPHINE [Suspect]
  6. ACTIQ [Suspect]
     Route: 002
  7. PREDNISONE [Concomitant]
     Indication: PERIOSTITIS
     Dates: start: 20090801
  8. ACUPAN [Concomitant]
     Indication: NEPHROLITHIASIS
     Dates: start: 20090801
  9. SUFENTA PRESERVATIVE FREE [Concomitant]
     Indication: ANAESTHESIA
     Dates: start: 20090830
  10. CLONAZEPAM [Concomitant]
     Indication: PAIN
     Dates: start: 20031001
  11. ZOMIG [Suspect]
  12. BUTAZOLIDIN [Concomitant]
     Indication: MUSCULOSKELETAL PAIN
     Dates: start: 20040401

REACTIONS (4)
  - PRINZMETAL ANGINA [None]
  - IMPETIGO HERPETIFORMIS [None]
  - ARRHYTHMIA SUPRAVENTRICULAR [None]
  - ANXIETY [None]
